FAERS Safety Report 24133631 (Version 2)
Quarter: 2024Q3

REPORT INFORMATION
  Report Type: Spontaneous
  Country: JP (occurrence: JP)
  Receive Date: 20240724
  Receipt Date: 20240813
  Transmission Date: 20241016
  Serious: Yes (Other)
  Sender: GENMAB
  Company Number: JP-GENMAB-2024-02101AA

PATIENT
  Age: 78 Year
  Sex: Male

DRUGS (6)
  1. EPKINLY [Suspect]
     Active Substance: EPCORITAMAB-BYSP
     Indication: Diffuse large B-cell lymphoma refractory
     Dosage: 0.16 MILLIGRAM, SINGLE
     Route: 058
     Dates: start: 20240613, end: 20240613
  2. EPKINLY [Suspect]
     Active Substance: EPCORITAMAB-BYSP
     Dosage: 0.8 MILLIGRAM, SINGLE
     Route: 058
     Dates: start: 20240620, end: 20240620
  3. EPKINLY [Suspect]
     Active Substance: EPCORITAMAB-BYSP
     Dosage: 48 MILLIGRAM, WEEKLY (2 DOSAGES)
     Route: 058
     Dates: start: 20240627, end: 20240704
  4. DEXAMETHASONE [Concomitant]
     Active Substance: DEXAMETHASONE
     Indication: Prophylaxis
     Dosage: UNK, ON DAY 1, DAY 2, DAY 3 AND DAY 4 OF ADMINISTRATION OF EPKINLY, FROM THE FIRST TO FOURTH ADMINIS
     Dates: start: 20240613, end: 20240707
  5. DIPHENHYDRAMINE [Concomitant]
     Active Substance: DIPHENHYDRAMINE
     Indication: Prophylaxis
     Dosage: UNK, ON DAY 1 OF ADMINISTRATION OF EPKINLY, FROM THE FIRST TO FOURTH ADMINISTRATION IN CYCLE 1
     Dates: start: 20240613, end: 20240704
  6. ACETAMINOPHEN [Concomitant]
     Active Substance: ACETAMINOPHEN
     Indication: Prophylaxis
     Dosage: UNK, ON DAY 1 OF ADMINISTRATION OF EPKINLY, FROM THE FIRST TO FOURTH ADMINISTRATION IN CYCLE 1
     Dates: start: 20240613, end: 20240704

REACTIONS (3)
  - Cytokine release syndrome [Recovered/Resolved]
  - Cytokine release syndrome [Recovered/Resolved]
  - Diffuse large B-cell lymphoma refractory [Unknown]

NARRATIVE: CASE EVENT DATE: 20240614
